FAERS Safety Report 8351312-0 (Version None)
Quarter: 2012Q2

REPORT INFORMATION
  Report Type: 
  Country: None (occurrence: None)
  Receive Date: 20120510
  Receipt Date: 20120430
  Transmission Date: 20120825
  Serious: Yes (Death, Hospitalization)
  Sender: FDA-Public Use
  Company Number: DK-BAXTER-2012BH007065

PATIENT
  Sex: Female

DRUGS (17)
  1. BISOPROLOL FUMARATE [Concomitant]
     Indication: HYPERTENSION
     Route: 065
  2. PERINDOPRIL ERBUMINE [Concomitant]
     Indication: HYPERTENSION
     Dosage: DOSE: 5 MG DAILY
     Route: 065
  3. CYCLOPHOSPHAMIDE [Suspect]
     Indication: DIFFUSE LARGE B-CELL LYMPHOMA
     Dosage: DOSE: DOSE ACCORDING TO REGIMEN EVERY 3RD WEEK.
     Route: 042
     Dates: start: 20110125
  4. WARFARIN SODIUM [Concomitant]
     Indication: ANTICOAGULANT THERAPY
     Route: 065
  5. VITAMIN D [Concomitant]
     Indication: SUPPLEMENTATION THERAPY
     Route: 065
  6. FERRO DURETTER [Concomitant]
     Route: 065
  7. CODEINE [Concomitant]
     Indication: ANALGESIC THERAPY
     Route: 065
  8. PREDNISOLONE [Suspect]
     Indication: DIFFUSE LARGE B-CELL LYMPHOMA
     Dosage: DOSE: DOSE ACCORDING TO REGIMEN EVERY 3RD WEEK.
     Route: 042
     Dates: start: 20110125
  9. ONCOVIN [Suspect]
     Indication: DIFFUSE LARGE B-CELL LYMPHOMA
     Dosage: DOSE: DOSE ACCORDING TO REGIMEN EVERY 3RD WEEK.
     Route: 042
     Dates: start: 20110125
  10. FUROSEMIDE [Concomitant]
     Indication: DIURETIC THERAPY
     Route: 065
  11. CITALOPRAM HYDROBROMIDE [Concomitant]
     Indication: DEPRESSION
     Dosage: DOSE: 40 MG DAILY
     Route: 065
  12. MABTHERA [Suspect]
     Indication: DIFFUSE LARGE B-CELL LYMPHOMA
     Dosage: DOSE: 375 MG/M2 EVERY 21 DAYS.
     Route: 042
     Dates: start: 20110125
  13. LANSOPRAZOLE [Concomitant]
     Route: 065
  14. SYMBICORT [Concomitant]
     Route: 055
  15. ETOPOSIDE [Suspect]
     Indication: DIFFUSE LARGE B-CELL LYMPHOMA
     Dosage: DOSE: DOSE ACCORDING TO REGIMEN EVERY 3RD WEEK.
     Route: 042
     Dates: start: 20110125
  16. RASBURICASE [Concomitant]
     Dosage: DAILY DOSE: 12 MG
     Route: 065
     Dates: start: 20120124, end: 20120124
  17. PENOMAX [Concomitant]
     Indication: CYSTITIS
     Dosage: DAILY DOSE: 1200 MG
     Route: 065
     Dates: start: 20120129

REACTIONS (2)
  - HEPATIC FAILURE [None]
  - HEPATITIS B [None]
